FAERS Safety Report 5555114-X (Version None)
Quarter: 2007Q4

REPORT INFORMATION
  Report Type: 
  Country: None (occurrence: None)
  Receive Date: 20071213
  Receipt Date: 20070809
  Transmission Date: 20080405
  Serious: No
  Sender: FDA-Public Use
  Company Number: US-AMGEN-KDL233292

PATIENT
  Sex: Female
  Weight: 67.2 kg

DRUGS (8)
  1. ENBREL [Suspect]
     Indication: RHEUMATOID ARTHRITIS
     Route: 058
     Dates: start: 20070205
  2. ENBREL [Suspect]
     Indication: POLYARTHRITIS
  3. METHOTREXATE [Concomitant]
     Route: 058
     Dates: start: 20060805
  4. PREDNISONE [Concomitant]
  5. PREVACID [Concomitant]
  6. MOTRIN [Concomitant]
  7. LEUCOVORIN CALCIUM [Concomitant]
  8. FOLIC ACID [Concomitant]

REACTIONS (5)
  - ABSCESS LIMB [None]
  - DRY EYE [None]
  - EYE SWELLING [None]
  - LOCALISED INFECTION [None]
  - RHEUMATOID ARTHRITIS [None]
